FAERS Safety Report 7687934-X (Version None)
Quarter: 2011Q3

REPORT INFORMATION
  Report Type: 
  Country: None (occurrence: None)
  Receive Date: 20110816
  Receipt Date: 20110816
  Transmission Date: 20111222
  Serious: Yes (Hospitalization)
  Sender: FDA-Public Use
  Company Number: None

PATIENT
  Sex: Female
  Weight: 49.5 kg

DRUGS (2)
  1. ETOPOSIDE [Suspect]
     Dosage: 438 MG
     Dates: end: 20110803
  2. CISPLATIN [Suspect]
     Dosage: 117 MG
     Dates: end: 20110801

REACTIONS (3)
  - WHITE BLOOD CELL COUNT DECREASED [None]
  - PYREXIA [None]
  - NEUTROPHIL COUNT DECREASED [None]
